FAERS Safety Report 17429045 (Version 1)
Quarter: 2020Q1

REPORT INFORMATION
  Report Type: Other
  Country: US (occurrence: US)
  Receive Date: 20200217
  Receipt Date: 20200217
  Transmission Date: 20200409
  Serious: No
  Sender: FDA-Public Use
  Company Number: US-FAGRON STERILE SERVICES-2080555

PATIENT
  Sex: Female
  Weight: 76 kg

DRUGS (1)
  1. TRIAMCINOLONE ACETONIDE SUSPENSION FOR INJECTION, 40 MG/ML, PRESERVATI [Suspect]
     Active Substance: TRIAMCINOLONE ACETONIDE
     Dates: start: 20200123, end: 20200123

REACTIONS (1)
  - Endophthalmitis [None]
